FAERS Safety Report 11638023 (Version 1)
Quarter: 2015Q4

REPORT INFORMATION
  Report Type: Spontaneous
  Country: IN (occurrence: IN)
  Receive Date: 20151016
  Receipt Date: 20151016
  Transmission Date: 20160304
  Serious: Yes (Death)
  Sender: FDA-Public Use
  Company Number: IN-IMPAX LABORATORIES, INC-2015-IPXL-01018

PATIENT
  Age: 10 Year
  Sex: Male

DRUGS (1)
  1. DIVALPROEX SODIUM ER [Suspect]
     Active Substance: DIVALPROEX SODIUM
     Indication: DYSTONIA
     Dosage: 500 MG, SINGLE
     Route: 065

REACTIONS (2)
  - Myoglobinuria [Fatal]
  - Acute kidney injury [Fatal]
